FAERS Safety Report 6426459-6 (Version None)
Quarter: 2009Q4

REPORT INFORMATION
  Report Type: 
  Country: None (occurrence: None)
  Receive Date: 20091103
  Receipt Date: 20091103
  Transmission Date: 20100525
  Serious: No
  Sender: FDA-Public Use
  Company Number: None

PATIENT
  Age: 39 Year
  Sex: Female
  Weight: 83.9154 kg

DRUGS (2)
  1. FEMCON FE [Suspect]
     Indication: CONTRACEPTION
     Dosage: 1 TABLET DAILY PO
     Route: 048
     Dates: start: 20040715, end: 20091012
  2. FEMCON FE [Suspect]
     Indication: POLYCYSTIC OVARIES
     Dosage: 1 TABLET DAILY PO
     Route: 048
     Dates: start: 20040715, end: 20091012

REACTIONS (2)
  - DRUG EXPOSURE DURING PREGNANCY [None]
  - PREGNANCY ON ORAL CONTRACEPTIVE [None]
